FAERS Safety Report 5419581-4 (Version None)
Quarter: 2007Q3

REPORT INFORMATION
  Report Type: 
  Country: None (occurrence: None)
  Receive Date: 20070718
  Receipt Date: 20060807
  Transmission Date: 20080115
  Serious: Yes (Disabling, Other)
  Sender: FDA-Public Use
  Company Number: 2006098443

PATIENT
  Age: 43 Year
  Sex: Female

DRUGS (4)
  1. CELEBREX [Suspect]
     Indication: INTERVERTEBRAL DISC PROTRUSION
     Dosage: ORAL
     Route: 048
     Dates: start: 20021001
  2. CELEBREX [Suspect]
     Indication: MYALGIA
     Dosage: ORAL
     Route: 048
     Dates: start: 20021001
  3. BEXTRA [Suspect]
     Indication: INTERVERTEBRAL DISC PROTRUSION
     Dosage: 30 MG, ORAL
     Route: 048
     Dates: start: 20021001
  4. BEXTRA [Suspect]
     Indication: MYALGIA
     Dosage: 30 MG, ORAL
     Route: 048
     Dates: start: 20021001

REACTIONS (2)
  - ASTHENIA [None]
  - MYOCARDIAL INFARCTION [None]
